FAERS Safety Report 4634000-3 (Version None)
Quarter: 2005Q2

REPORT INFORMATION
  Report Type: 
  Country: None (occurrence: None)
  Receive Date: 20050407
  Receipt Date: 20050324
  Transmission Date: 20051028
  Serious: Yes (Death)
  Sender: FDA-Public Use
  Company Number: 2005-BP-00487BP

PATIENT
  Age: 45 Year
  Sex: Female

DRUGS (1)
  1. MOBIC [Suspect]
     Dosage: PO
     Route: 048
     Dates: start: 20040101

REACTIONS (1)
  - MYOCARDIAL INFARCTION [None]
